FAERS Safety Report 6617068-4 (Version None)
Quarter: 2010Q1

REPORT INFORMATION
  Report Type: 
  Country: None (occurrence: None)
  Receive Date: 20100307
  Receipt Date: 20100222
  Transmission Date: 20100710
  Serious: Yes (Hospitalization)
  Sender: FDA-Public Use
  Company Number: HR-ELI_LILLY_AND_COMPANY-HR201002006770

PATIENT
  Age: 30 Year
  Sex: Female

DRUGS (2)
  1. ZYPREXA [Suspect]
     Indication: SCHIZOPHRENIA
     Dosage: 20 MG, OTHER
     Dates: start: 20070101
  2. ZYPREXA [Suspect]
     Dosage: 20 MG, 2/D
     Dates: start: 20091224, end: 20100208

REACTIONS (4)
  - BRADYCARDIA [None]
  - CONDITION AGGRAVATED [None]
  - OVERDOSE [None]
  - SCHIZOPHRENIA [None]
